FAERS Safety Report 25163940 (Version 1)
Quarter: 2025Q2

REPORT INFORMATION
  Report Type: Spontaneous
  Country: CN (occurrence: CN)
  Receive Date: 20250405
  Receipt Date: 20250405
  Transmission Date: 20250717
  Serious: Yes (Hospitalization, Other)
  Sender: AMNEAL
  Company Number: CN-AMNEAL PHARMACEUTICALS-2025-AMRX-01203

PATIENT
  Age: 60 Year
  Sex: Female

DRUGS (3)
  1. BACLOFEN [Suspect]
     Active Substance: BACLOFEN
     Indication: Muscle spasms
     Dosage: 10 MILLIGRAM, 2X/DAY
     Route: 048
     Dates: start: 20231108
  2. CITALOPRAM [Concomitant]
     Active Substance: CITALOPRAM
     Indication: Product used for unknown indication
     Dosage: 20 MILLIGRAM, QD
     Route: 065
  3. OXCARBAZEPINE [Concomitant]
     Active Substance: OXCARBAZEPINE
     Indication: Product used for unknown indication
     Dosage: 0.3 GRAM, 3X/DAY
     Route: 065

REACTIONS (1)
  - Central sleep apnoea syndrome [Recovering/Resolving]
